FAERS Safety Report 6897907-2 (Version None)
Quarter: 2010Q3

REPORT INFORMATION
  Report Type: 
  Country: None (occurrence: None)
  Receive Date: 20100802
  Receipt Date: 20070815
  Transmission Date: 20110219
  Serious: Yes (Other)
  Sender: FDA-Public Use
  Company Number: US-PFIZER INC-2007066147

PATIENT
  Sex: Female

DRUGS (1)
  1. LYRICA [Suspect]
     Indication: HERPES ZOSTER
     Dates: end: 20070804

REACTIONS (2)
  - DRUG INEFFECTIVE [None]
  - MEMORY IMPAIRMENT [None]
